FAERS Safety Report 6871137-2 (Version None)
Quarter: 2010Q3

REPORT INFORMATION
  Report Type: 
  Country: None (occurrence: None)
  Receive Date: 20100721
  Receipt Date: 20100709
  Transmission Date: 20110219
  Serious: Yes (Other)
  Sender: FDA-Public Use
  Company Number: OSCN-NO-0902S-0120

PATIENT
  Age: 31 Year
  Sex: Male
  Weight: 95 kg

DRUGS (10)
  1. OMNISCAN [Suspect]
     Indication: RENAL TRANSPLANT
     Dosage: 19 ML, I.E. 0.1 MMOL/KG, SINGLE DOSE, I.V.; 19 ML, I.E. 0.1 MMOL/KG, SINGLE DOSE, I.V.
     Route: 042
     Dates: start: 20060104, end: 20060104
  2. OMNISCAN [Suspect]
     Indication: RENAL TRANSPLANT
     Dosage: 19 ML, I.E. 0.1 MMOL/KG, SINGLE DOSE, I.V.; 19 ML, I.E. 0.1 MMOL/KG, SINGLE DOSE, I.V.
     Route: 042
     Dates: start: 20060111, end: 20060111
  3. ENALAPRIL [Concomitant]
  4. BISOPROLOL [Concomitant]
  5. IMMUNOSUPPRESSIVE THERAPIES [Concomitant]
  6. EPOETIN ALFA [Concomitant]
  7. EPOETIN BETA [Concomitant]
  8. ATORVASTATIN [Concomitant]
  9. AMLODIPINE [Concomitant]
  10. FUROSEMIDE [Concomitant]

REACTIONS (3)
  - ANAEMIA [None]
  - CREATININE RENAL CLEARANCE DECREASED [None]
  - NEPHROGENIC SYSTEMIC FIBROSIS [None]
